FAERS Safety Report 6871904-5 (Version None)
Quarter: 2010Q3

REPORT INFORMATION
  Report Type: 
  Country: None (occurrence: None)
  Receive Date: 20100723
  Receipt Date: 20100715
  Transmission Date: 20110219
  Serious: Yes (Life-Threatening, Hospitalization)
  Sender: FDA-Public Use
  Company Number: CZ-PFIZER INC-2010089576

PATIENT
  Age: 22 Year
  Sex: Male
  Weight: 73 kg

DRUGS (4)
  1. SOMATROPIN [Suspect]
     Indication: HYPOPITUITARISM
     Dosage: 0.3 MG, 1X/DAY
     Dates: start: 20090911
  2. HYDROCORTISONE [Concomitant]
     Dosage: 30 MG, 1X/DAY
     Route: 048
     Dates: start: 20081118
  3. SUSTANON [Concomitant]
     Dosage: 250 MG, MONTHLY
     Route: 030
     Dates: start: 20090911
  4. LEVOTHYROXINE SODIUM [Concomitant]
     Dosage: 100 UG, 1X/DAY
     Route: 048
     Dates: start: 20081118

REACTIONS (1)
  - PITUITARY TUMOUR BENIGN [None]
